FAERS Safety Report 8836135 (Version 1)
Quarter: 2012Q4

REPORT INFORMATION
  Report Type: 
  Country: US (occurrence: US)
  Receive Date: 20121011
  Receipt Date: 20121011
  Transmission Date: 20130627
  Serious: Yes (Other)
  Sender: FDA-Public Use
  Company Number: PHEH2012US019763

PATIENT
  Sex: Male

DRUGS (4)
  1. DIOVAN HCT [Suspect]
     Indication: HYPERTENSION
     Dosage: 320/12.5mg
     Route: 048
  2. TEKAMLO [Suspect]
     Indication: HYPERTENSION
     Route: 048
  3. NIASPAN [Concomitant]
  4. BYSTOLIC [Concomitant]

REACTIONS (1)
  - Diabetes mellitus [Unknown]
